FAERS Safety Report 17194726 (Version 1)
Quarter: 2019Q4

REPORT INFORMATION
  Report Type: Spontaneous
  Country: US (occurrence: US)
  Receive Date: 20191217
  Receipt Date: 20191217
  Transmission Date: 20200122
  Serious: Yes (Hospitalization)
  Sender: FDA-Public Use
  Company Number: None

PATIENT
  Age: 64 Year
  Sex: Male

DRUGS (3)
  1. WARFARIN [Suspect]
     Active Substance: WARFARIN
     Dates: start: 20191027, end: 20191031
  2. HEPARIN [Suspect]
     Active Substance: HEPARIN SODIUM
     Indication: SURGERY
     Dates: start: 20191031, end: 20191101
  3. HEPARIN [Suspect]
     Active Substance: HEPARIN SODIUM
     Indication: ATRIAL FIBRILLATION
     Dates: start: 20191031, end: 20191101

REACTIONS (2)
  - Haemorrhage [None]
  - Hypotension [None]

NARRATIVE: CASE EVENT DATE: 20191031
